FAERS Safety Report 5242699-6 (Version None)
Quarter: 2007Q1

REPORT INFORMATION
  Report Type: 
  Country: None (occurrence: None)
  Receive Date: 20070221
  Receipt Date: 20070214
  Transmission Date: 20070707
  Serious: Yes (Other)
  Sender: FDA-Public Use
  Company Number: US-GLAXOSMITHKLINE-A0611010A

PATIENT
  Age: 45 Year
  Sex: Male

DRUGS (5)
  1. PAXIL [Suspect]
     Indication: DEPRESSION
     Route: 048
     Dates: end: 20060101
  2. PROZAC [Suspect]
     Indication: DEPRESSION
     Route: 048
     Dates: start: 20060101
  3. LUNESTA [Concomitant]
     Indication: SLEEP DISORDER
  4. TRAZODONE HCL [Concomitant]
     Indication: ANXIETY
  5. AMBIEN [Concomitant]
     Indication: SLEEP DISORDER

REACTIONS (8)
  - BIPOLAR DISORDER [None]
  - DELUSION [None]
  - HOMICIDAL IDEATION [None]
  - HOMICIDE [None]
  - MAJOR DEPRESSION [None]
  - PSYCHOTIC DISORDER [None]
  - THINKING ABNORMAL [None]
  - WEIGHT INCREASED [None]
